FAERS Safety Report 5313031-4 (Version None)
Quarter: 2007Q2

REPORT INFORMATION
  Report Type: 
  Country: None (occurrence: None)
  Receive Date: 20070430
  Receipt Date: 20070419
  Transmission Date: 20071010
  Serious: Yes (Life-Threatening)
  Sender: FDA-Public Use
  Company Number: JP-PFIZER INC-2007017091

PATIENT
  Sex: Female
  Weight: 51 kg

DRUGS (7)
  1. CAMPTOSAR [Suspect]
     Indication: RECTAL CANCER
     Route: 042
     Dates: start: 20070110, end: 20070110
  2. OXYCONTIN [Concomitant]
     Indication: PAIN
     Route: 048
  3. PRIMPERAN INJ [Concomitant]
     Indication: NAUSEA
     Route: 048
     Dates: start: 20070110, end: 20070114
  4. SODIUM BICARBONATE [Concomitant]
     Route: 048
     Dates: start: 20070110, end: 20070114
  5. MAGNESIUM OXIDE [Concomitant]
     Indication: CONSTIPATION
     Route: 048
     Dates: start: 20070110, end: 20070114
  6. URSO [Concomitant]
     Route: 048
     Dates: start: 20070110, end: 20070114
  7. KYTRIL [Concomitant]
     Indication: NAUSEA
     Route: 048
     Dates: start: 20070110, end: 20070114

REACTIONS (2)
  - DIARRHOEA [None]
  - DISSEMINATED INTRAVASCULAR COAGULATION [None]
